FAERS Safety Report 13556576 (Version 1)
Quarter: 2017Q2

REPORT INFORMATION
  Report Type: Spontaneous
  Country: US (occurrence: US)
  Receive Date: 20170517
  Receipt Date: 20170517
  Transmission Date: 20170830
  Serious: No
  Sender: FDA-Public Use
  Company Number: US-SA-2017SA042651

PATIENT
  Age: 66 Year
  Sex: Female

DRUGS (5)
  1. LANTUS SOLOSTAR [Concomitant]
     Active Substance: INSULIN GLARGINE
     Dosage: DOSE:27-28 IN THE?AFTERNOON AND 6-8 UNITS AT NIGHT
  2. HUMULIN NOS [Concomitant]
     Active Substance: INSULIN HUMAN
  3. TOUJEO [Suspect]
     Active Substance: INSULIN GLARGINE
     Route: 065
  4. SOLOSTAR [Concomitant]
     Active Substance: DEVICE
  5. SOLOSTAR [Concomitant]
     Active Substance: DEVICE

REACTIONS (1)
  - Drug ineffective [Unknown]
